FAERS Safety Report 21756122 (Version 1)
Quarter: 2022Q4

REPORT INFORMATION
  Report Type: Spontaneous
  Country: FR (occurrence: FR)
  Receive Date: 20221220
  Receipt Date: 20221220
  Transmission Date: 20230113
  Serious: Yes (Other)
  Sender: FDA-Public Use
  Company Number: FR-009507513-2212FRA007071

PATIENT
  Age: 59 Year
  Sex: Male

DRUGS (1)
  1. PEMBROLIZUMAB [Suspect]
     Active Substance: PEMBROLIZUMAB
     Indication: Squamous cell carcinoma of lung
     Dosage: UNK

REACTIONS (3)
  - Immune-mediated uveitis [Recovering/Resolving]
  - Papilloedema [Recovering/Resolving]
  - Macular oedema [Recovering/Resolving]
